FAERS Safety Report 16733045 (Version 3)
Quarter: 2019Q4

REPORT INFORMATION
  Report Type: Spontaneous
  Country: US (occurrence: US)
  Receive Date: 20190823
  Receipt Date: 20191031
  Transmission Date: 20200122
  Serious: No
  Sender: FDA-Public Use
  Company Number: US-AMGEN-USASP2019133049

PATIENT
  Age: 69 Year
  Sex: Female
  Weight: 94.7 kg

DRUGS (2)
  1. SENSIPAR [Suspect]
     Active Substance: CINACALCET HYDROCHLORIDE
     Indication: HYPERPARATHYROIDISM PRIMARY
     Dosage: 30 MILLIGRAM, QD
     Route: 048
     Dates: start: 20190613, end: 20190717
  2. SENSIPAR [Suspect]
     Active Substance: CINACALCET HYDROCHLORIDE
     Dosage: 30 MILLIGRAM, QOD
     Route: 048
     Dates: start: 20190719

REACTIONS (3)
  - Wrong technique in product usage process [Unknown]
  - Blood calcium decreased [Recovered/Resolved]
  - Blood parathyroid hormone decreased [Unknown]

NARRATIVE: CASE EVENT DATE: 2019
